FAERS Safety Report 4490606-6 (Version None)
Quarter: 2004Q4

REPORT INFORMATION
  Report Type: 
  Country: None (occurrence: None)
  Receive Date: 20041102
  Receipt Date: 20040621
  Transmission Date: 20050328
  Serious: Yes (Congenital Anomaly, Other)
  Sender: FDA-Public Use
  Company Number: GB-BRISTOL-MYERS SQUIBB COMPANY-12621512

PATIENT

DRUGS (3)
  1. VIDEX [Suspect]
     Route: 064
  2. NEVIRAPINE [Suspect]
     Route: 064
  3. RETROVIR [Suspect]
     Route: 064

REACTIONS (5)
  - BRAIN MALFORMATION [None]
  - CONGENITAL CENTRAL NERVOUS SYSTEM ANOMALY [None]
  - PREGNANCY [None]
  - PULMONARY HYPOPLASIA [None]
  - STILLBIRTH [None]
